FAERS Safety Report 6095919-2 (Version None)
Quarter: 2009Q1

REPORT INFORMATION
  Report Type: 
  Country: None (occurrence: None)
  Receive Date: 20090227
  Receipt Date: 20080716
  Transmission Date: 20090719
  Serious: No
  Sender: FDA-Public Use
  Company Number: A0737960A

PATIENT
  Age: 70 Year
  Sex: Female

DRUGS (5)
  1. LAMICTAL [Suspect]
     Indication: BIPOLAR DISORDER
     Dosage: 2TAB PER DAY
     Route: 048
     Dates: start: 20080201
  2. PRAVASTATIN [Suspect]
     Dosage: 1TAB PER DAY
     Dates: start: 20080201
  3. PROZAC [Concomitant]
  4. SUPPLEMENT [Concomitant]
  5. WHEAT GERM OIL [Concomitant]

REACTIONS (2)
  - ALOPECIA [None]
  - HAIR GROWTH ABNORMAL [None]
